FAERS Safety Report 20124249 (Version 1)
Quarter: 2021Q4

REPORT INFORMATION
  Report Type: Spontaneous
  Country: US (occurrence: US)
  Receive Date: 20211129
  Receipt Date: 20211129
  Transmission Date: 20220303
  Serious: Yes (Other)
  Sender: FDA-Public Use
  Company Number: US-GLAXOSMITHKLINE- US2021GSK244358

PATIENT
  Sex: Male

DRUGS (14)
  1. ZANTAC [Suspect]
     Active Substance: RANITIDINE HYDROCHLORIDE
     Indication: Dyspepsia
     Dosage: 150 MG, 1 TIME A DAY
     Route: 065
     Dates: start: 200301, end: 200401
  2. ZANTAC [Suspect]
     Active Substance: RANITIDINE HYDROCHLORIDE
     Dosage: 150 MG, 2 TIMES A DAY
     Route: 065
     Dates: start: 200301, end: 200401
  3. ZANTAC [Suspect]
     Active Substance: RANITIDINE HYDROCHLORIDE
     Indication: Dyspepsia
     Dosage: 150 MG, 1 TIME A DAY
     Route: 065
     Dates: start: 200301, end: 200401
  4. ZANTAC [Suspect]
     Active Substance: RANITIDINE HYDROCHLORIDE
     Dosage: 150 MG, 2 TIMES A DAY
     Route: 065
     Dates: start: 200301, end: 200401
  5. RANITIDINE HYDROCHLORIDE [Suspect]
     Active Substance: RANITIDINE HYDROCHLORIDE
     Indication: Dyspepsia
     Dosage: 150 MG, 1 TIME A DAY
     Route: 065
     Dates: start: 200301, end: 200401
  6. RANITIDINE HYDROCHLORIDE [Suspect]
     Active Substance: RANITIDINE HYDROCHLORIDE
     Dosage: 150 MG, 2 TIMES A DAY
     Route: 065
     Dates: start: 200301, end: 200401
  7. RANITIDINE HYDROCHLORIDE [Suspect]
     Active Substance: RANITIDINE HYDROCHLORIDE
     Indication: Dyspepsia
     Dosage: 150 MG, 1 TIME A DAY
     Route: 065
     Dates: start: 200301, end: 200401
  8. RANITIDINE HYDROCHLORIDE [Suspect]
     Active Substance: RANITIDINE HYDROCHLORIDE
     Dosage: 150 MG, 2 TIMES A DAY
     Route: 065
     Dates: start: 200301, end: 200401
  9. ZANTAC [Suspect]
     Active Substance: RANITIDINE HYDROCHLORIDE
     Indication: Dyspepsia
     Dosage: 150 MG, 1 TIME A DAY
     Route: 065
     Dates: start: 200301, end: 200401
  10. ZANTAC [Suspect]
     Active Substance: RANITIDINE HYDROCHLORIDE
     Dosage: 150 MG, 2 TIMES A DAY
     Route: 065
     Dates: start: 200301, end: 200401
  11. RANITIDINE HYDROCHLORIDE [Suspect]
     Active Substance: RANITIDINE HYDROCHLORIDE
     Indication: Dyspepsia
     Dosage: 150 MG, 1 TIME A DAY
     Route: 065
     Dates: start: 200301, end: 200401
  12. RANITIDINE HYDROCHLORIDE [Suspect]
     Active Substance: RANITIDINE HYDROCHLORIDE
     Dosage: 150 MG,2 TIMES A DAY
     Route: 065
     Dates: start: 200301, end: 200401
  13. RANITIDINE [Suspect]
     Active Substance: RANITIDINE
     Indication: Dyspepsia
     Dosage: 150 MG, 1 TIME A DAY
     Route: 065
     Dates: start: 200301, end: 200401
  14. RANITIDINE [Suspect]
     Active Substance: RANITIDINE
     Dosage: 150 MG,2 TIMES A DAY
     Route: 065
     Dates: start: 200301, end: 200401

REACTIONS (3)
  - Bladder cancer [Unknown]
  - Renal cancer [Unknown]
  - Prostate cancer [Unknown]
